FAERS Safety Report 5753128-8 (Version None)
Quarter: 2008Q2

REPORT INFORMATION
  Report Type: 
  Country: None (occurrence: None)
  Receive Date: 20080527
  Receipt Date: 20080508
  Transmission Date: 20081010
  Serious: Yes (Hospitalization)
  Sender: FDA-Public Use
  Company Number: 8032662

PATIENT
  Age: 69 Year
  Sex: Female
  Weight: 58 kg

DRUGS (9)
  1. PREDNISOLONE [Suspect]
     Indication: RHEUMATOID ARTHRITIS
  2. ENBREL [Suspect]
     Indication: RHEUMATOID ARTHRITIS
     Dates: start: 20040712, end: 20041101
  3. REMICADE [Suspect]
     Indication: RHEUMATOID ARTHRITIS
     Dosage: 3 MG/KG 1/W IV
     Route: 042
     Dates: start: 20020513, end: 20040105
  4. AMITRIPTYLINE HCL [Concomitant]
  5. CO-DYDRAMOL [Concomitant]
  6. FOSAMAX [Concomitant]
  7. LISINOPRIL [Concomitant]
  8. PLAQUENIL [Concomitant]
  9. ZOPICLONE [Concomitant]

REACTIONS (3)
  - BASAL CELL CARCINOMA [None]
  - DISEASE RECURRENCE [None]
  - ECZEMA [None]
